FAERS Safety Report 8524744-5 (Version None)
Quarter: 2012Q3

REPORT INFORMATION
  Report Type: 
  Country: None (occurrence: None)
  Receive Date: 20120710
  Receipt Date: 20120627
  Transmission Date: 20120928
  Serious: Yes (Disabling)
  Sender: FDA-Public Use
  Company Number: 2012MA008107

PATIENT
  Age: 3 Month
  Sex: Female

DRUGS (1)
  1. CARBOPLATIN [Suspect]
     Indication: PRODUCT USED FOR UNKNOWN INDICATION
     Dosage: X1, IV
     Route: 042
     Dates: start: 20120305, end: 20120305

REACTIONS (5)
  - DEAFNESS BILATERAL [None]
  - DRUG LEVEL INCREASED [None]
  - DRUG DISPENSING ERROR [None]
  - INCORRECT DRUG ADMINISTRATION DURATION [None]
  - WRONG TECHNIQUE IN DRUG USAGE PROCESS [None]
